FAERS Safety Report 24963450 (Version 2)
Quarter: 2025Q1

REPORT INFORMATION
  Report Type: Spontaneous
  Country: US (occurrence: US)
  Receive Date: 20250213
  Receipt Date: 20250227
  Transmission Date: 20250409
  Serious: Yes (Hospitalization)
  Sender: TEVA
  Company Number: US-TEVA-VS-3295339

PATIENT
  Age: 23 Year
  Sex: Female

DRUGS (9)
  1. CLONIDINE [Suspect]
     Active Substance: CLONIDINE
     Indication: Inappropriate sinus tachycardia
     Route: 065
  2. MIDODRINE [Suspect]
     Active Substance: MIDODRINE
     Indication: Inappropriate sinus tachycardia
     Route: 065
  3. ROPIVACAINE [Suspect]
     Active Substance: ROPIVACAINE
     Indication: Nerve block
     Dosage: A CONTINUOUS 0.2% ROPIVACAINE INFUSION 4?ML/HR WAS INITIATED
     Route: 065
  4. DESMOPRESSIN [Suspect]
     Active Substance: DESMOPRESSIN
     Indication: Inappropriate sinus tachycardia
     Route: 065
  5. SODIUM CHLORIDE [Suspect]
     Active Substance: SODIUM CHLORIDE
     Indication: Inappropriate sinus tachycardia
     Route: 065
  6. CHLORHEXIDINE [Suspect]
     Active Substance: CHLORHEXIDINE
     Indication: Anti-infective therapy
     Route: 065
  7. BETADINE [Concomitant]
     Active Substance: POVIDONE-IODINE
     Indication: Anti-infective therapy
     Route: 065
  8. BUPIVACAINE [Suspect]
     Active Substance: BUPIVACAINE
     Indication: Nerve block
     Dosage: RECEIVED 2?SINGLE-INJECTIONS 6?WEEKS APART
     Route: 065
  9. IVABRADINE [Suspect]
     Active Substance: IVABRADINE
     Indication: Inappropriate sinus tachycardia
     Route: 065

REACTIONS (3)
  - Drug ineffective [Unknown]
  - Horner^s syndrome [Unknown]
  - Drug hypersensitivity [Unknown]
